FAERS Safety Report 13322710 (Version 1)
Quarter: 2017Q1

REPORT INFORMATION
  Report Type: Spontaneous
  Country: US (occurrence: US)
  Receive Date: 20170310
  Receipt Date: 20170310
  Transmission Date: 20170428
  Serious: No
  Sender: FDA-Public Use
  Company Number: US-TARO-2016TAR00642

PATIENT
  Sex: Female
  Weight: 58.96 kg

DRUGS (1)
  1. LAMOTRIGINE TABLETS 100 MG [Suspect]
     Active Substance: LAMOTRIGINE
     Indication: MIGRAINE
     Dosage: 100 MG, 2X/DAY
     Route: 048
     Dates: start: 201606

REACTIONS (3)
  - Product substitution issue [Not Recovered/Not Resolved]
  - Vertigo [Recovered/Resolved]
  - Drug ineffective for unapproved indication [Not Recovered/Not Resolved]
